FAERS Safety Report 5365875-0 (Version None)
Quarter: 2007Q2

REPORT INFORMATION
  Report Type: 
  Country: None (occurrence: None)
  Receive Date: 20070611
  Receipt Date: 20061211
  Transmission Date: 20071010
  Serious: Yes (Death, Other)
  Sender: FDA-Public Use
  Company Number: USA-2006-0025993

PATIENT
  Age: 42 Year
  Sex: Male

DRUGS (6)
  1. OXYCODONE HCL [Suspect]
     Indication: DRUG ABUSER
  2. MORPHINE SULFATE [Suspect]
     Indication: DRUG ABUSER
  3. ETHANOL (ETHANOL) [Suspect]
     Indication: DRUG ABUSER
  4. COCAINE (COCAINE) [Suspect]
     Indication: DRUG ABUSER
  5. ACETAMINOPHEN [Suspect]
  6. HEROIN (DIAMORPHINE) [Suspect]
     Indication: DRUG ABUSER

REACTIONS (2)
  - MULTIPLE DRUG OVERDOSE ACCIDENTAL [None]
  - SUBSTANCE ABUSE [None]
